FAERS Safety Report 9125122 (Version 1)
Quarter: 2013Q1

REPORT INFORMATION
  Report Type: Spontaneous
  Country: FR (occurrence: FR)
  Receive Date: 20130117
  Receipt Date: 20130117
  Transmission Date: 20140127
  Serious: Yes (Death, Life-Threatening, Hospitalization)
  Sender: FDA-Public Use
  Company Number: FR-BRISTOL-MYERS SQUIBB COMPANY-17273616

PATIENT
  Age: 68 Year
  Sex: Female

DRUGS (13)
  1. COAPROVEL TABS 300MG/ 25MG [Suspect]
     Route: 048
  2. LIPITOR [Suspect]
     Dosage: FORMULATION-LIPITOR 80 MG,FILM-COATED TAB
     Route: 048
     Dates: start: 2009, end: 20120110
  3. ASAFLOW [Suspect]
     Dosage: FORMULATION-ASAFLOW 80 MG
     Route: 048
  4. BURINEX [Suspect]
     Dosage: FORMULATION-BURINEX 1 MG, TAB
     Route: 048
  5. SELOZOK [Suspect]
     Dosage: FORMULATION-SELOZOK 200 MG
     Route: 048
  6. MEDROL [Suspect]
     Dosage: FORMULATION-MEDROL 4 MG SCORED TABLET
     Route: 048
  7. AURORIX [Suspect]
     Dosage: FORMULATION-AURORIX 150 MG FILM-COATED TABS
     Route: 048
  8. OXAZEPAM [Suspect]
     Dosage: 2TABS IN THE EVENG
     Route: 048
  9. VITAMIN D3 [Suspect]
     Dosage: FORMULATION-VITAMINE D3 BON?1DF=1 AMPOULE
     Route: 048
  10. BRONCHOSEDAL [Suspect]
     Dosage: FORMULATION-BRONCHOSEDAL CODEINE SYRUP 200 ML
     Route: 048
  11. OMEPRAZOLE [Suspect]
     Dosage: 20 MG GASTRO-RESISTANT CAPSULES
     Route: 048
  12. LYRICA [Suspect]
     Dosage: FORMULATION-LYRICA 75 MG CAPS?2DF=MRNG AND EVG
     Route: 048
     Dates: start: 20111220
  13. SINEQUAN [Suspect]
     Dosage: FORMULATION-SINEQUAN 50 MG CAPS.?1DF IN EVG
     Route: 048
     Dates: start: 20111205, end: 20111220

REACTIONS (3)
  - Death [Fatal]
  - Rhabdomyolysis [Recovering/Resolving]
  - Fall [Unknown]
